FAERS Safety Report 19646366 (Version 1)
Quarter: 2021Q3

REPORT INFORMATION
  Report Type: Spontaneous
  Country: DE (occurrence: DE)
  Receive Date: 20210802
  Receipt Date: 20210802
  Transmission Date: 20211014
  Serious: No
  Sender: FDA-Public Use
  Company Number: DE-ALKEM LABORATORIES LIMITED-DE-ALKEM-2020-07592

PATIENT
  Age: 53 Year
  Sex: Female
  Weight: 95 kg

DRUGS (3)
  1. CEFUROXIME AXETIL. [Suspect]
     Active Substance: CEFUROXIME AXETIL
     Indication: POST PROCEDURAL INFLAMMATION
     Dosage: 500 MILLIGRAM, BID (EVERY 12 HOUR)
     Route: 048
     Dates: start: 20201005, end: 20201011
  2. INDOMETACIN AL 50 [Concomitant]
     Indication: POST PROCEDURAL INFLAMMATION
     Dosage: 50 MILLIGRAM, TID (EVERY 8 HOUR)
     Route: 065
     Dates: start: 202010
  3. EUTHYROX [Concomitant]
     Active Substance: LEVOTHYROXINE SODIUM
     Indication: HYPOTHYROIDISM
     Dosage: UNK
     Route: 065

REACTIONS (4)
  - Dry skin [Recovered/Resolved]
  - Erythema [Recovered/Resolved]
  - Swelling face [Recovered/Resolved]
  - Periorbital swelling [Recovered/Resolved]

NARRATIVE: CASE EVENT DATE: 20201010
